FAERS Safety Report 7887135-6 (Version None)
Quarter: 2011Q4

REPORT INFORMATION
  Report Type: 
  Country: None (occurrence: None)
  Receive Date: 20111102
  Receipt Date: 20110715
  Transmission Date: 20120403
  Serious: No
  Sender: FDA-Public Use
  Company Number: US-AMGEN-USASP2011036086

PATIENT
  Sex: Female

DRUGS (2)
  1. HUMIRA [Concomitant]
  2. ENBREL [Suspect]
     Indication: PSORIATIC ARTHROPATHY
     Dosage: 50 MG, QWK
     Dates: start: 20110520

REACTIONS (5)
  - DRUG INEFFECTIVE [None]
  - ARTHRALGIA [None]
  - INJECTION SITE PAIN [None]
  - PSORIASIS [None]
  - INJECTION SITE REACTION [None]
